FAERS Safety Report 8900886 (Version 1)
Quarter: 2012Q4

REPORT INFORMATION
  Report Type: 
  Country: DK (occurrence: DK)
  Receive Date: 20121109
  Receipt Date: 20121109
  Transmission Date: 20130627
  Serious: Yes (Other)
  Sender: FDA-Public Use
  Company Number: DK-MYLANLABS-2012S1022973

PATIENT
  Age: 60 Year
  Sex: Female
  Weight: 70 kg

DRUGS (1)
  1. FEXOFENADINE [Suspect]
     Indication: RASH PRURITIC
     Dosage: STYRKE: 180 mg
     Dates: start: 20120613, end: 20120613

REACTIONS (2)
  - Influenza [Recovered/Resolved]
  - Dysstasia [Recovered/Resolved]
